FAERS Safety Report 7533121-5 (Version None)
Quarter: 2011Q2

REPORT INFORMATION
  Report Type: 
  Country: None (occurrence: None)
  Receive Date: 20110608
  Receipt Date: 20110601
  Transmission Date: 20111010
  Serious: Yes (Hospitalization, Other)
  Sender: FDA-Public Use
  Company Number: US-US-EMD SERONO, INC.-234756K09USA

PATIENT
  Sex: Female

DRUGS (11)
  1. CALTRATE WITH D [Concomitant]
  2. ALLEGRA [Concomitant]
  3. REBIF [Suspect]
     Route: 058
     Dates: start: 20090328
  4. NORVASC [Concomitant]
  5. LISINOPRIL [Concomitant]
  6. ESTROGEN PATCH [Concomitant]
  7. LEXAPRO [Concomitant]
  8. CARBATROL [Concomitant]
  9. REBIF [Suspect]
     Indication: MULTIPLE SCLEROSIS
     Route: 058
     Dates: start: 20081101, end: 20090321
  10. TYLENOL-500 [Concomitant]
  11. IBUPROFEN [Concomitant]

REACTIONS (3)
  - INJECTION SITE ERYTHEMA [None]
  - APPENDICITIS [None]
  - UMBILICAL HERNIA [None]
